FAERS Safety Report 5297237-9 (Version None)
Quarter: 2007Q2

REPORT INFORMATION
  Report Type: 
  Country: None (occurrence: None)
  Receive Date: 20070416
  Receipt Date: 20070403
  Transmission Date: 20071010
  Serious: Yes (Hospitalization)
  Sender: FDA-Public Use
  Company Number: US-JNJFOC-20070105384

PATIENT
  Sex: Female
  Weight: 56.25 kg

DRUGS (16)
  1. REMICADE [Suspect]
     Route: 042
  2. REMICADE [Suspect]
     Route: 042
  3. REMICADE [Suspect]
     Route: 042
  4. REMICADE [Suspect]
     Dosage: INDUCTION DOSE 5 MG/KG
     Route: 042
  5. REMICADE [Suspect]
     Dosage: INDUCTION DOSE 5 MG/KG
     Route: 042
  6. REMICADE [Suspect]
     Indication: CROHN'S DISEASE
     Dosage: INDUCTION DOSE 5 MG/KG
     Route: 042
  7. PREDNISONE TAB [Concomitant]
     Dosage: TAPERED OVER PREVIOUS 3 WEEKS TO 5 MG DAILY
     Route: 048
  8. PREDNISONE TAB [Concomitant]
     Route: 048
  9. PREDNISONE TAB [Concomitant]
     Route: 048
  10. PROVENTIL-HFA [Concomitant]
  11. ADVAIR DISKUS 100/50 [Concomitant]
  12. IRON [Concomitant]
  13. POTASSIUM ACETATE [Concomitant]
  14. VITAMIN AND MINERAL PRENATAL SUPPLEMENT W/ FOLIC ACID CAP [Concomitant]
  15. AZATHIOPRINE [Concomitant]
  16. IBUPROFEN [Concomitant]
     Indication: MYALGIA

REACTIONS (5)
  - ARTHROPOD BITE [None]
  - FURUNCLE [None]
  - PNEUMONIA [None]
  - SKIN NECROSIS [None]
  - TREMOR [None]
